FAERS Safety Report 7370277-1 (Version None)
Quarter: 2011Q1

REPORT INFORMATION
  Report Type: 
  Country: None (occurrence: None)
  Receive Date: 20110323
  Receipt Date: 20110316
  Transmission Date: 20110831
  Serious: Yes (Death, Other)
  Sender: FDA-Public Use
  Company Number: JP-ASTRAZENECA-2011SE15854

PATIENT
  Age: 87 Year
  Sex: Male
  Weight: 77 kg

DRUGS (2)
  1. CANDESARTAN CILEXETIL [Suspect]
     Indication: HYPERTENSION
     Route: 065
  2. PREDNISOLONE [Suspect]
     Indication: HENOCH-SCHONLEIN PURPURA NEPHRITIS
     Route: 048

REACTIONS (3)
  - CYTOMEGALOVIRUS COLITIS [None]
  - HENOCH-SCHONLEIN PURPURA NEPHRITIS [None]
  - HENOCH-SCHONLEIN PURPURA [None]
